FAERS Safety Report 16755877 (Version 1)
Quarter: 2019Q3

REPORT INFORMATION
  Report Type: Spontaneous
  Country: ZA (occurrence: ZA)
  Receive Date: 20190829
  Receipt Date: 20190829
  Transmission Date: 20191005
  Serious: Yes (Hospitalization, Other)
  Sender: FDA-Public Use
  Company Number: ZA-ASTRAZENECA-2019SF21741

PATIENT
  Sex: Male

DRUGS (6)
  1. SANDOZ K 600 [Concomitant]
  2. TRUSTAN [Suspect]
     Active Substance: ESOMEPRAZOLE
     Route: 048
  3. LASIX [Concomitant]
     Active Substance: FUROSEMIDE
  4. CARLOC [Concomitant]
     Active Substance: CARVEDILOL
  5. SPIRACTIN [Concomitant]
  6. WARFARIN [Concomitant]
     Active Substance: WARFARIN

REACTIONS (1)
  - Cardiac failure [Unknown]
